FAERS Safety Report 19578167 (Version 1)
Quarter: 2021Q3

REPORT INFORMATION
  Report Type: Spontaneous
  Country: CA (occurrence: CA)
  Receive Date: 20210719
  Receipt Date: 20210719
  Transmission Date: 20211014
  Serious: Yes (Hospitalization, Other)
  Sender: FDA-Public Use
  Company Number: CA-PFIZER INC-2021838676

PATIENT
  Age: 49 Year
  Sex: Female

DRUGS (4)
  1. MYOVIEW [TETROFOSMIN;ZINC CHLORIDE] [Concomitant]
     Active Substance: TETROFOSMIN\ZINC CHLORIDE
  2. DIPYRIDAMOLE. [Concomitant]
     Active Substance: DIPYRIDAMOLE
  3. AMINOPHYLLINE. [Suspect]
     Active Substance: AMINOPHYLLINE
     Indication: SCAN MYOCARDIAL PERFUSION
     Dosage: 175 MG
     Route: 042
  4. SALINE [SODIUM CHLORIDE] [Concomitant]
     Active Substance: SODIUM CHLORIDE

REACTIONS (10)
  - Incontinence [Not Recovered/Not Resolved]
  - Psychogenic seizure [Not Recovered/Not Resolved]
  - Gait disturbance [Not Recovered/Not Resolved]
  - Psychomotor skills impaired [Not Recovered/Not Resolved]
  - Disturbance in attention [Not Recovered/Not Resolved]
  - Headache [Not Recovered/Not Resolved]
  - Nasopharyngitis [Not Recovered/Not Resolved]
  - Seizure [Not Recovered/Not Resolved]
  - Retching [Not Recovered/Not Resolved]
  - Hyperventilation [Not Recovered/Not Resolved]
